FAERS Safety Report 13328987 (Version 1)
Quarter: 2017Q1

REPORT INFORMATION
  Report Type: Spontaneous
  Country: US (occurrence: US)
  Receive Date: 20170310
  Receipt Date: 20170310
  Transmission Date: 20170428
  Serious: No
  Sender: FDA-Public Use
  Company Number: None

PATIENT
  Age: 58 Year
  Sex: Male

DRUGS (1)
  1. STIVARGA [Suspect]
     Active Substance: REGORAFENIB
     Indication: PRODUCT USED FOR UNKNOWN INDICATION
     Route: 048
     Dates: start: 20161220, end: 20170118

REACTIONS (5)
  - Abdominal pain upper [None]
  - Drug intolerance [None]
  - Nausea [None]
  - Feeling abnormal [None]
  - Abdominal discomfort [None]

NARRATIVE: CASE EVENT DATE: 20170118
